FAERS Safety Report 5710672-7 (Version None)
Quarter: 2008Q2

REPORT INFORMATION
  Report Type: 
  Country: None (occurrence: None)
  Receive Date: 20080415
  Receipt Date: 20080414
  Transmission Date: 20081010
  Serious: Yes (Death, Hospitalization)
  Sender: FDA-Public Use
  Company Number: 2008EU000532

PATIENT
  Age: 69 Year
  Sex: Male

DRUGS (9)
  1. TACROLIMUS [Suspect]
     Indication: RENAL TRANSPLANT
     Dosage: 3.5 MG, ORAL
     Route: 048
     Dates: start: 19980609
  2. SODIUM BICARBONATE IN PLASTIC CONTAINER [Concomitant]
  3. AMLODIPINE [Concomitant]
  4. RANITIDINE [Concomitant]
  5. CALCIUM (CALCIUM) [Concomitant]
  6. CLOPIDOGREL [Concomitant]
  7. FOLIC ACID [Concomitant]
  8. ALFACALCIDOL (ALFACALCIDOL) [Concomitant]
  9. COMBIVENT [Concomitant]

REACTIONS (15)
  - ATRIAL FIBRILLATION [None]
  - BONE DISORDER [None]
  - CEREBROVASCULAR ACCIDENT [None]
  - EMPHYSEMA [None]
  - HILAR LYMPHADENOPATHY [None]
  - OESOPHAGEAL SQUAMOUS CELL CARCINOMA [None]
  - OSTEOPENIA [None]
  - PANCREATIC ATROPHY [None]
  - PNEUMONIA ASPIRATION [None]
  - PULMONARY FIBROSIS [None]
  - PULMONARY GRANULOMA [None]
  - RENAL ATROPHY [None]
  - RENAL FAILURE CHRONIC [None]
  - SEPSIS [None]
  - STENT OCCLUSION [None]
